FAERS Safety Report 6356771-0 (Version None)
Quarter: 2009Q3

REPORT INFORMATION
  Report Type: 
  Country: None (occurrence: None)
  Receive Date: 20090915
  Receipt Date: 20090908
  Transmission Date: 20100115
  Serious: Yes (Other)
  Sender: FDA-Public Use
  Company Number: TW-ROXANE LABORATORIES, INC.-2009-RO-00913RO

PATIENT
  Age: 46 Year
  Sex: Female

DRUGS (13)
  1. LITHIUM CARBONATE [Suspect]
     Indication: SCHIZOAFFECTIVE DISORDER BIPOLAR TYPE
     Dosage: 900 MG
  2. LITHIUM CARBONATE [Suspect]
     Indication: IRRITABILITY
  3. LITHIUM CARBONATE [Suspect]
     Indication: PSYCHOMOTOR HYPERACTIVITY
  4. RISPERIDONE [Suspect]
  5. HYPOGLYCEMIC AGENT [Suspect]
     Indication: DIABETES MELLITUS
     Route: 048
  6. HALOPERIDOL [Suspect]
     Indication: SCHIZOAFFECTIVE DISORDER BIPOLAR TYPE
     Dosage: 7.5 MG
  7. TRIHEXYPHENDYL [Suspect]
     Indication: EXTRAPYRAMIDAL DISORDER
     Dosage: 6 MG
  8. TRIHEXYPHENDYL [Suspect]
     Indication: PARKINSONISM
  9. BIPERIDEN HYDROCHLORIDE TAB [Suspect]
     Indication: EXTRAPYRAMIDAL DISORDER
     Dosage: 4 MG
  10. BIPERIDEN HYDROCHLORIDE TAB [Suspect]
     Indication: PARKINSONISM
  11. ARIPIPRAZOLE [Suspect]
     Indication: SCHIZOAFFECTIVE DISORDER BIPOLAR TYPE
     Dosage: 10 MG
  12. CLOZAPINE [Concomitant]
     Indication: PSYCHOTIC DISORDER
  13. CARBAMAZEPINE [Concomitant]
     Indication: PSYCHOTIC DISORDER

REACTIONS (8)
  - DRUG INEFFECTIVE [None]
  - EXTRAPYRAMIDAL DISORDER [None]
  - IRRITABILITY [None]
  - PARKINSONISM [None]
  - PLEUROTHOTONUS [None]
  - POLYDIPSIA [None]
  - POLYURIA [None]
  - PSYCHOMOTOR HYPERACTIVITY [None]
